FAERS Safety Report 9395187 (Version 2)
Quarter: 2013Q3

REPORT INFORMATION
  Report Type: Spontaneous
  Country: IT (occurrence: IT)
  Receive Date: 20130711
  Receipt Date: 20130909
  Transmission Date: 20140515
  Serious: Yes (Hospitalization)
  Sender: FDA-Public Use
  Company Number: IT-SANOFI-AVENTIS-2013SA067259

PATIENT
  Age: 64 Year
  Sex: Male
  Weight: 135 kg

DRUGS (5)
  1. CLEXANE T [Suspect]
     Indication: DEEP VEIN THROMBOSIS
     Route: 058
     Dates: start: 20130515, end: 20130520
  2. COUMADIN [Suspect]
     Indication: ATRIAL FIBRILLATION
     Route: 048
     Dates: start: 20100101, end: 20130520
  3. OMEPRAZOLE [Concomitant]
     Route: 048
  4. ALLOPURINOL [Concomitant]
  5. LASIX [Concomitant]
     Dosage: STRENGTH: 25 MG
     Route: 048

REACTIONS (3)
  - Psychomotor retardation [Recovering/Resolving]
  - Subdural haematoma [Recovering/Resolving]
  - Monoparesis [Recovering/Resolving]
